FAERS Safety Report 25109139 (Version 1)
Quarter: 2025Q1

REPORT INFORMATION
  Report Type: Other
  Country: TW (occurrence: TW)
  Receive Date: 20250322
  Receipt Date: 20250322
  Transmission Date: 20250408
  Serious: Yes (Death, Hospitalization, Other)
  Sender: LYNE LABORATORIES
  Company Number: TW-Lyne Laboratories Inc.-2173456

PATIENT
  Sex: Male
  Weight: 1.68 kg

DRUGS (6)
  1. CLINDAMYCIN PALMITATE HYDROCHLORIDE [Suspect]
     Active Substance: CLINDAMYCIN PALMITATE HYDROCHLORIDE
     Indication: Staphylococcal scalded skin syndrome
  2. OXACILLIN [Suspect]
     Active Substance: OXACILLIN SODIUM
  3. EPINEPHRINE [Concomitant]
     Active Substance: EPINEPHRINE
  4. FLUCONAZOLE [Concomitant]
     Active Substance: FLUCONAZOLE
  5. GENTAMICIN [Suspect]
     Active Substance: GENTAMICIN
  6. MEROPENEM [Suspect]
     Active Substance: MEROPENEM

REACTIONS (1)
  - Neonatal candida infection [Fatal]
